FAERS Safety Report 6704797-7 (Version None)
Quarter: 2010Q2

REPORT INFORMATION
  Report Type: 
  Country: None (occurrence: None)
  Receive Date: 20100430
  Receipt Date: 20100226
  Transmission Date: 20101027
  Serious: No
  Sender: FDA-Public Use
  Company Number: US-ASTRAZENECA-2010SE08557

PATIENT
  Age: 51 Year
  Sex: Female
  Weight: 65.3 kg

DRUGS (2)
  1. NEXIUM [Suspect]
     Indication: GASTROOESOPHAGEAL REFLUX DISEASE
     Route: 048
     Dates: start: 20100224
  2. PAXIL [Concomitant]

REACTIONS (1)
  - TONGUE DISCOLOURATION [None]
